FAERS Safety Report 8547617-0 (Version None)
Quarter: 2012Q3

REPORT INFORMATION
  Report Type: 
  Country: None (occurrence: None)
  Receive Date: 20120727
  Receipt Date: 20120330
  Transmission Date: 20120928
  Serious: Yes (Hospitalization)
  Sender: FDA-Public Use
  Company Number: US-ASTRAZENECA-2012SE21629

PATIENT
  Sex: Female

DRUGS (14)
  1. MORPHINE SULFATE [Concomitant]
     Dosage: CONTIN, 30 MG TWO TIMES A DAY
  2. TIZANIDINE HCL [Concomitant]
  3. SEROQUEL [Suspect]
     Indication: BIPOLAR DISORDER
     Route: 048
  4. MORPHINE SULFATE [Concomitant]
     Dosage: IR, 15 MG TWO TIMES A DAY
  5. SEROQUEL [Suspect]
     Indication: INSOMNIA
     Route: 048
  6. AMLODIPINE [Concomitant]
  7. KLONOPIN [Concomitant]
  8. RESTERAL [Concomitant]
  9. TRAZODONE HYDROCHLORIDE [Concomitant]
  10. CLONAZEPAM [Concomitant]
  11. TESTOSTERONE CYPIONATE [Concomitant]
  12. LEVOTHYROXINE SODIUM [Concomitant]
     Indication: THYROXINE DECREASED
  13. PRAVASTATIN [Concomitant]
  14. PANTOPRAZOLE DR [Concomitant]

REACTIONS (4)
  - SOMNOLENCE [None]
  - CONVULSION [None]
  - SEDATION [None]
  - BLOOD PRESSURE DECREASED [None]
